FAERS Safety Report 10206749 (Version 2)
Quarter: 2014Q2

REPORT INFORMATION
  Report Type: Spontaneous
  Country: US (occurrence: US)
  Receive Date: 20140530
  Receipt Date: 20140609
  Transmission Date: 20141212
  Serious: Yes (Other)
  Sender: FDA-Public Use
  Company Number: US-AMGEN-USASP2014038639

PATIENT
  Age: 55 Year
  Sex: Female

DRUGS (8)
  1. PROLIA [Suspect]
     Indication: PRODUCT USED FOR UNKNOWN INDICATION
     Route: 065
  2. LORTAB                             /00607101/ [Concomitant]
     Route: 065
  3. CALCIUM [Concomitant]
     Route: 065
  4. XANAX [Concomitant]
     Route: 065
  5. LISINOPRIL [Concomitant]
     Route: 065
  6. DOXYCYCLINE [Concomitant]
     Route: 065
  7. DEXILANT [Concomitant]
     Route: 065
  8. LODINE [Concomitant]
     Route: 065

REACTIONS (12)
  - Bedridden [Unknown]
  - Malaise [Unknown]
  - Arthralgia [Unknown]
  - Gait disturbance [Unknown]
  - Pain [Unknown]
  - Influenza [Not Recovered/Not Resolved]
  - Nasopharyngitis [Not Recovered/Not Resolved]
  - Ear pain [Unknown]
  - Lip pain [Unknown]
  - Neck pain [Unknown]
  - Neuralgia [Unknown]
  - Headache [Unknown]
